FAERS Safety Report 5684221-6 (Version None)
Quarter: 2008Q1

REPORT INFORMATION
  Report Type: 
  Country: None (occurrence: None)
  Receive Date: 20080328
  Receipt Date: 20080104
  Transmission Date: 20080703
  Serious: No
  Sender: FDA-Public Use
  Company Number: US-AMGEN-KDL255771

PATIENT
  Sex: Male
  Weight: 77.6 kg

DRUGS (17)
  1. NEULASTA [Suspect]
     Indication: CHEMOTHERAPY
     Route: 058
     Dates: start: 20070601
  2. AVASTIN [Concomitant]
     Dates: start: 20070718
  3. ALPRAZOLAM [Concomitant]
     Route: 048
  4. OXALIPLATIN [Concomitant]
  5. LEUCOVORIN CALCIUM [Concomitant]
     Dates: start: 20070502
  6. FLUOROPYRIMIDINE [Concomitant]
  7. DIPHENOXYLATE [Concomitant]
  8. ATROPINE [Concomitant]
  9. NEUMEGA [Concomitant]
     Dates: start: 20071031
  10. FLUOROURACIL [Concomitant]
     Dates: start: 20070502
  11. ZOFRAN [Concomitant]
     Dates: start: 20070502
  12. DECADRON [Concomitant]
     Dates: start: 20070502
  13. XANAX [Concomitant]
  14. TRAZODONE HCL [Concomitant]
  15. SKELAXIN [Concomitant]
  16. METOPROLOL TARTRATE [Concomitant]
  17. GLYBURIDE [Concomitant]

REACTIONS (5)
  - ABDOMINAL PAIN [None]
  - ARTHRALGIA [None]
  - BONE PAIN [None]
  - CHEST PAIN [None]
  - INFLUENZA LIKE ILLNESS [None]
